FAERS Safety Report 8300037-6 (Version None)
Quarter: 2012Q2

REPORT INFORMATION
  Report Type: 
  Country: None (occurrence: None)
  Receive Date: 20120417
  Receipt Date: 20120403
  Transmission Date: 20120825
  Serious: Yes (Other)
  Sender: FDA-Public Use
  Company Number: AUR-APL-2011-05100

PATIENT
  Age: 81 Year
  Sex: Male

DRUGS (6)
  1. LANSOPRAZOLE [Concomitant]
  2. LISINOPRIL [Concomitant]
  3. QUININE SULFATE [Concomitant]
  4. PRVASTATN (PRVASTATIN) [Concomitant]
  5. ASPIRIN [Concomitant]
  6. SIMVASTATIN [Suspect]
     Indication: BLOOD CHOLESTEROL INCREASED
     Dosage: 1 IN 1 D, ORAL
     Route: 048
     Dates: start: 20040101, end: 20090802

REACTIONS (9)
  - MUSCULAR WEAKNESS [None]
  - MUSCULOSKELETAL STIFFNESS [None]
  - INSOMNIA [None]
  - DISCOMFORT [None]
  - BLEPHARITIS [None]
  - SENSORY LOSS [None]
  - MUSCLE RIGIDITY [None]
  - MUSCLE SPASMS [None]
  - NEUROPATHY PERIPHERAL [None]
